FAERS Safety Report 9751610 (Version 5)
Quarter: 2014Q2

REPORT INFORMATION
  Report Type: Spontaneous
  Country: US (occurrence: US)
  Receive Date: 20131212
  Receipt Date: 20140502
  Transmission Date: 20141212
  Serious: Yes (Hospitalization, Other)
  Sender: FDA-Public Use
  Company Number: US-009507513-1312USA004079

PATIENT
  Age: 58 Year
  Sex: Female

DRUGS (8)
  1. REBETOL [Suspect]
     Indication: HEPATITIS C
     Dosage: 3 IN AM, 2 IN PM AT SUPPER
     Route: 048
     Dates: start: 20131113
  2. REBETOL [Suspect]
     Dosage: 2 IN AM, 2 IN PM AT SUPPER
     Route: 048
  3. REBETOL [Suspect]
     Dosage: 400 MG, BID
     Route: 048
     Dates: end: 20140301
  4. PEGINTRON [Suspect]
     Indication: HEPATITIS C
     Dosage: 0.5 ML, QW
     Route: 058
     Dates: start: 20131113
  5. PEGINTRON [Suspect]
     Dosage: 0.35 ML, QW
     Route: 058
  6. PEGINTRON [Suspect]
     Dosage: 0.5 ML, QW
     Route: 058
     Dates: end: 20140301
  7. VICTRELIS [Suspect]
     Indication: HEPATITIS C
     Dosage: 4 DF, Q8H
     Route: 048
     Dates: start: 20131212, end: 20140301
  8. SYNTHROID [Concomitant]
     Indication: HYPOTHYROIDISM
     Dosage: 25 MICROGRAM, QD
     Dates: start: 20140102

REACTIONS (35)
  - Portal hypertension [Unknown]
  - Cholecystitis acute [Unknown]
  - Pancreatitis acute [Unknown]
  - Pancytopenia [Unknown]
  - Hepatic cirrhosis [Unknown]
  - Cough [Unknown]
  - Cholelithiasis [Unknown]
  - Lipase increased [Unknown]
  - Muscle spasms [Unknown]
  - Dry mouth [Unknown]
  - Platelet count decreased [Unknown]
  - Hyperhidrosis [Unknown]
  - Fatigue [Unknown]
  - Aggression [Unknown]
  - Poor quality sleep [Unknown]
  - Ageusia [Unknown]
  - Dysgeusia [Unknown]
  - Headache [Unknown]
  - Painful respiration [Unknown]
  - Arthralgia [Unknown]
  - Body temperature increased [Recovered/Resolved]
  - Neutropenia [Unknown]
  - Anaemia [Unknown]
  - Nail bed bleeding [Unknown]
  - Infection [Unknown]
  - Platelet count decreased [Unknown]
  - Thrombocytopenia [Unknown]
  - Blood disorder [Unknown]
  - Abdominal pain [Unknown]
  - Therapeutic response decreased [Unknown]
  - Biliary dilatation [Unknown]
  - Hypothyroidism [Unknown]
  - Fatigue [Unknown]
  - Depression [Unknown]
  - Drug ineffective [Unknown]
